FAERS Safety Report 11771466 (Version 1)
Quarter: 2015Q4

REPORT INFORMATION
  Report Type: Spontaneous
  Country: US (occurrence: None)
  Receive Date: 20151123
  Receipt Date: 20151123
  Transmission Date: 20160304
  Serious: No
  Sender: FDA-Public Use
  Company Number: None

PATIENT
  Age: 48 Year
  Sex: Female
  Weight: 67.13 kg

DRUGS (2)
  1. BUPROPION SR [Suspect]
     Active Substance: BUPROPION
     Indication: DEPRESSION
     Route: 048
     Dates: start: 20151116, end: 20151122
  2. C-PAP MACHINE [Concomitant]
     Active Substance: DEVICE

REACTIONS (2)
  - Malaise [None]
  - Tinnitus [None]

NARRATIVE: CASE EVENT DATE: 20151122
